FAERS Safety Report 7645699-1 (Version None)
Quarter: 2011Q3

REPORT INFORMATION
  Report Type: 
  Country: None (occurrence: None)
  Receive Date: 20110729
  Receipt Date: 20110725
  Transmission Date: 20111222
  Serious: No
  Sender: FDA-Public Use
  Company Number: US-PFIZER INC-2011169464

PATIENT
  Sex: Female

DRUGS (4)
  1. VILAZODONE HYDROCHLORIDE [Suspect]
     Indication: ANXIETY
     Dosage: 10 MG, 1X/DAY
     Route: 048
     Dates: start: 20110715
  2. XANAX [Concomitant]
     Indication: ANXIETY
     Dosage: 5 MG, AT NIGHT
  3. PRISTIQ [Suspect]
     Dosage: UNK
     Dates: start: 20110601, end: 20110713
  4. VILAZODONE HYDROCHLORIDE [Suspect]
     Indication: DEPRESSION

REACTIONS (4)
  - PARAESTHESIA [None]
  - HYPOAESTHESIA [None]
  - NAUSEA [None]
  - MUSCULOSKELETAL STIFFNESS [None]
